FAERS Safety Report 8792685 (Version 2)
Quarter: 2015Q1

REPORT INFORMATION
  Report Type: Report from Study
  Country: US (occurrence: US)
  Receive Date: 20120918
  Receipt Date: 20150302
  Transmission Date: 20150721
  Serious: Yes (Death)
  Sender: FDA-Public Use
  Company Number: US-ROCHE-1095425

PATIENT
  Sex: Male

DRUGS (9)
  1. MORPHINE [Concomitant]
     Active Substance: MORPHINE
     Route: 042
  2. MORPHINE [Concomitant]
     Active Substance: MORPHINE
     Route: 042
  3. CARBOPLATIN. [Concomitant]
     Active Substance: CARBOPLATIN
     Route: 042
  4. ALOXI [Concomitant]
     Active Substance: PALONOSETRON HYDROCHLORIDE
     Route: 042
  5. DECADRON [Concomitant]
     Active Substance: DEXAMETHASONE
     Route: 042
  6. AVASTIN [Suspect]
     Active Substance: BEVACIZUMAB
     Indication: BONE CANCER
     Route: 042
  7. TAXOTERE [Concomitant]
     Active Substance: DOCETAXEL
     Route: 042
  8. CARBOPLATIN. [Concomitant]
     Active Substance: CARBOPLATIN
     Route: 042
  9. AVASTIN [Suspect]
     Active Substance: BEVACIZUMAB
     Indication: LUNG NEOPLASM MALIGNANT
     Route: 042

REACTIONS (2)
  - Death [Fatal]
  - Chest pain [Unknown]
